FAERS Safety Report 15612973 (Version 1)
Quarter: 2018Q4

REPORT INFORMATION
  Report Type: Spontaneous
  Country: US (occurrence: US)
  Receive Date: 20181108
  Receipt Date: 20181108
  Transmission Date: 20190205
  Serious: No
  Sender: FDA-Public Use
  Company Number: None

PATIENT
  Age: 61 Year
  Sex: Female

DRUGS (1)
  1. ENTECAVIR 0.5MG TAB (X30) [Suspect]
     Active Substance: ENTECAVIR
     Dates: start: 201809

REACTIONS (4)
  - Gastric disorder [None]
  - Muscle spasms [None]
  - Nausea [None]
  - Fatigue [None]

NARRATIVE: CASE EVENT DATE: 20181105
